FAERS Safety Report 6946810-8 (Version None)
Quarter: 2010Q3

REPORT INFORMATION
  Report Type: 
  Country: None (occurrence: None)
  Receive Date: 20100827
  Receipt Date: 20090813
  Transmission Date: 20110219
  Serious: No
  Sender: FDA-Public Use
  Company Number: US-ABBOTT-09P-163-0592016-00

PATIENT
  Sex: Male
  Weight: 77.18 kg

DRUGS (7)
  1. NIASPAN [Suspect]
     Indication: MYOCARDIAL INFARCTION
     Dates: start: 20070101, end: 20080101
  2. NIASPAN [Suspect]
     Dates: start: 20080101
  3. TOPROL-XL [Concomitant]
     Indication: CARDIAC DISORDER
  4. LISINOPRIL [Concomitant]
     Indication: CARDIAC DISORDER
  5. ASPIRIN [Concomitant]
     Indication: PROPHYLAXIS
  6. ASPIRIN [Concomitant]
     Indication: FLUSHING
  7. CRESTOR [Concomitant]
     Indication: CARDIAC DISORDER

REACTIONS (3)
  - COELIAC DISEASE [None]
  - PRURITUS [None]
  - RASH [None]
